FAERS Safety Report 5591423-6 (Version None)
Quarter: 2008Q1

REPORT INFORMATION
  Report Type: 
  Country: None (occurrence: None)
  Receive Date: 20080111
  Receipt Date: 20080111
  Transmission Date: 20080703
  Serious: Yes (Hospitalization)
  Sender: FDA-Public Use
  Company Number: None

PATIENT
  Sex: Female
  Weight: 53 kg

DRUGS (3)
  1. TAXOTERE [Suspect]
     Indication: BREAST CANCER
     Dosage: 75 MG/M2 Q 3 WEEKS INTRAVENEOUS (NOT OTHERWISE SPECIFIED)
     Route: 042
     Dates: start: 20071015
  2. ADRIAMYCIN PFS [Suspect]
     Indication: BREAST CANCER
     Dosage: 50 MG/M2 Q 3 WEEKS INTRAVENEOUS (NOT OTHERWISE SPECIFIED)
     Route: 042
     Dates: start: 20071015
  3. CYTOXAN [Suspect]
     Dosage: 500 MG/M2 Q 3 WKS
     Dates: start: 20071015, end: 20080107

REACTIONS (4)
  - ANXIETY [None]
  - ATELECTASIS [None]
  - CHEST DISCOMFORT [None]
  - CHEST PAIN [None]
